FAERS Safety Report 9036309 (Version 1)
Quarter: 2013Q1

REPORT INFORMATION
  Report Type: Spontaneous
  Country: US (occurrence: None)
  Receive Date: 20130117
  Receipt Date: 20130117
  Transmission Date: 20140127
  Serious: Yes (Other)
  Sender: FDA-Public Use
  Company Number: None

PATIENT
  Sex: Male
  Weight: 102.97 kg

DRUGS (2)
  1. ZONISAMIDE [Suspect]
  2. ZONISAMIDE [Suspect]

REACTIONS (5)
  - Headache [None]
  - Irritability [None]
  - Insomnia [None]
  - Fatigue [None]
  - Nausea [None]
